FAERS Safety Report 19678930 (Version 3)
Quarter: 2021Q4

REPORT INFORMATION
  Report Type: Spontaneous
  Country: US (occurrence: US)
  Receive Date: 20210809
  Receipt Date: 20211012
  Transmission Date: 20220303
  Serious: Yes (Other)
  Sender: FDA-Public Use
  Company Number: US-PFIZER INC-2021682542

PATIENT
  Age: 62 Year
  Sex: Female

DRUGS (4)
  1. IBRANCE [Suspect]
     Active Substance: PALBOCICLIB
     Dosage: 125 MG
  2. IBRANCE [Suspect]
     Active Substance: PALBOCICLIB
     Dosage: 100 MG
     Dates: start: 20210831, end: 20210920
  3. IMBRUVICA [Suspect]
     Active Substance: IBRUTINIB
     Dosage: 125 MG
  4. IMBRUVICA [Suspect]
     Active Substance: IBRUTINIB
     Dosage: 100 MG

REACTIONS (14)
  - Stomatitis [Unknown]
  - Dehydration [Unknown]
  - Diarrhoea [Not Recovered/Not Resolved]
  - Oropharyngeal pain [Unknown]
  - Vomiting [Not Recovered/Not Resolved]
  - Pyrexia [Unknown]
  - Tremor [Unknown]
  - Nausea [Unknown]
  - Decreased appetite [Unknown]
  - Yellow skin [Unknown]
  - Depression [Unknown]
  - Cough [Unknown]
  - Depressed mood [Unknown]
  - Abdominal pain upper [Unknown]

NARRATIVE: CASE EVENT DATE: 20210520
